FAERS Safety Report 24196425 (Version 1)
Quarter: 2024Q3

REPORT INFORMATION
  Report Type: Spontaneous
  Country: US (occurrence: US)
  Receive Date: 20240810
  Receipt Date: 20240810
  Transmission Date: 20241017
  Serious: Yes (Other)
  Sender: APOTEX
  Company Number: US-APOTEX-2024AP009149

PATIENT
  Age: 29 Year
  Sex: Female

DRUGS (10)
  1. ATOVAQUONE [Suspect]
     Active Substance: ATOVAQUONE
     Indication: Antifungal prophylaxis
     Dosage: 150 MILLIGRAM, QD
     Route: 048
  2. AZATHIOPRINE [Suspect]
     Active Substance: AZATHIOPRINE
     Indication: Antifungal prophylaxis
     Dosage: 25 MILLIGRAM, QD
     Route: 048
  3. ANAKINRA [Suspect]
     Active Substance: ANAKINRA
     Indication: Antifungal prophylaxis
     Dosage: 100 MILLIGRAM, QD
     Route: 058
  4. METHYLPREDNISOLONE [Suspect]
     Active Substance: METHYLPREDNISOLONE
     Indication: Antifungal prophylaxis
     Dosage: 24 MILLIGRAM, QD
     Route: 048
  5. METHYLPREDNISOLONE [Suspect]
     Active Substance: METHYLPREDNISOLONE
     Indication: Still^s disease
     Dosage: 48 MILLIGRAM, QD
     Route: 042
  6. METHYLPREDNISOLONE [Suspect]
     Active Substance: METHYLPREDNISOLONE
     Indication: Condition aggravated
  7. URSODIOL [Suspect]
     Active Substance: URSODIOL
     Indication: Antifungal prophylaxis
     Dosage: 300 MILLIGRAM, QD
     Route: 048
  8. NITROFURANTOIN [Suspect]
     Active Substance: NITROFURANTOIN
     Indication: Urinary tract infection
     Dosage: UNK
     Route: 065
  9. NITROFURANTOIN [Suspect]
     Active Substance: NITROFURANTOIN
     Indication: Enterococcal infection
  10. NEUPOGEN [Suspect]
     Active Substance: FILGRASTIM
     Indication: Neutropenia
     Dosage: UNK, 7 DAY REGIMEN
     Route: 065

REACTIONS (2)
  - Drug-induced liver injury [Recovering/Resolving]
  - Maternal exposure during pregnancy [Unknown]
